FAERS Safety Report 12835337 (Version 1)
Quarter: 2016Q4

REPORT INFORMATION
  Report Type: Spontaneous
  Country: US (occurrence: US)
  Receive Date: 20161011
  Receipt Date: 20161011
  Transmission Date: 20170207
  Serious: No
  Sender: FDA-Public Use
  Company Number: US-AMGEN-USASP2016132304

PATIENT
  Age: 23 Year
  Sex: Female

DRUGS (1)
  1. ENBREL [Suspect]
     Active Substance: ETANERCEPT
     Indication: PSORIASIS
     Dosage: 50 MG, 2 TIMES/WK
     Route: 065
     Dates: start: 2016

REACTIONS (5)
  - Injection site reaction [Unknown]
  - Injection site bruising [Not Recovered/Not Resolved]
  - Injection site rash [Unknown]
  - Injection site erythema [Recovering/Resolving]
  - Injection site urticaria [Unknown]

NARRATIVE: CASE EVENT DATE: 201609
